FAERS Safety Report 6709829-8 (Version None)
Quarter: 2010Q2

REPORT INFORMATION
  Report Type: 
  Country: None (occurrence: None)
  Receive Date: 20100504
  Receipt Date: 20100426
  Transmission Date: 20101027
  Serious: Yes (Other)
  Sender: FDA-Public Use
  Company Number: A0856731A

PATIENT
  Sex: Female

DRUGS (4)
  1. LAMICTAL [Suspect]
     Indication: EPILEPSY
     Dosage: 500MG VARIABLE DOSE
     Route: 048
     Dates: start: 20010401
  2. CALCIUM [Concomitant]
  3. FISH OIL [Concomitant]
  4. VITAMIN B-12 [Concomitant]

REACTIONS (2)
  - VISUAL IMPAIRMENT [None]
  - VITREOUS FLOATERS [None]
